FAERS Safety Report 9288996 (Version 1)
Quarter: 2013Q2

REPORT INFORMATION
  Report Type: Spontaneous
  Country: US (occurrence: None)
  Receive Date: 20130509
  Receipt Date: 20130509
  Transmission Date: 20140414
  Serious: Yes (Hospitalization)
  Sender: FDA-Public Use
  Company Number: 20130223

PATIENT
  Age: 53 Year
  Sex: Female

DRUGS (2)
  1. CLONIDINE HYDROCHLORIDE [Suspect]
     Dosage: 0.688 MCG/HR: 20.38 MCG/ML
     Route: 037
  2. BACLOFEN [Suspect]
     Indication: MUSCLE SPASTICITY
     Dosage: (1000 MCG/HR)
     Route: 037
     Dates: start: 20130403

REACTIONS (6)
  - Mental status changes [None]
  - Toxicity to various agents [None]
  - Hypotension [None]
  - Sedation [None]
  - Fatigue [None]
  - Communication disorder [None]
